FAERS Safety Report 5114593-2 (Version None)
Quarter: 2006Q3

REPORT INFORMATION
  Report Type: 
  Country: None (occurrence: None)
  Receive Date: 20060926
  Receipt Date: 20060914
  Transmission Date: 20061208
  Serious: Yes (Death, Other)
  Sender: FDA-Public Use
  Company Number: US-JNJFOC-20050701625

PATIENT
  Sex: Female
  Weight: 62.14 kg

DRUGS (10)
  1. REMICADE [Suspect]
     Indication: RHEUMATOID ARTHRITIS
     Route: 042
  2. NIFEDIPINE [Concomitant]
     Dosage: DAILY
  3. ZOCOR [Concomitant]
     Dosage: DAILY
  4. ALTACE [Concomitant]
     Dosage: DAILY
  5. NIACIN [Concomitant]
     Dosage: DAILY
  6. MULTI-VITAMIN [Concomitant]
     Dosage: DAILY
  7. CALCIUM+D [Concomitant]
  8. ARAVA [Concomitant]
     Dosage: DAILY
  9. ALEVE (CAPLET) [Concomitant]
     Dosage: DAILY
  10. FOSAMAX [Concomitant]
     Dosage: WEEKLY

REACTIONS (3)
  - INAPPROPRIATE ANTIDIURETIC HORMONE SECRETION [None]
  - LUNG NEOPLASM MALIGNANT [None]
  - METASTASES TO CENTRAL NERVOUS SYSTEM [None]
